FAERS Safety Report 6059763-4 (Version None)
Quarter: 2009Q1

REPORT INFORMATION
  Report Type: 
  Country: None (occurrence: None)
  Receive Date: 20090130
  Receipt Date: 20090122
  Transmission Date: 20090719
  Serious: Yes (Life-Threatening, Hospitalization)
  Sender: FDA-Public Use
  Company Number: GB-TYCO HEALTHCARE/MALLINCKRODT-T200900105

PATIENT

DRUGS (1)
  1. OPTIRAY 300 [Suspect]
     Indication: CARDIAC IMAGING PROCEDURE
     Dosage: 90 ML, SINGLE
     Route: 042
     Dates: start: 20081023, end: 20081023

REACTIONS (1)
  - CARDIAC ARREST [None]
